FAERS Safety Report 4795221-2 (Version None)
Quarter: 2005Q4

REPORT INFORMATION
  Report Type: 
  Country: None (occurrence: None)
  Receive Date: 20051006
  Receipt Date: 20050915
  Transmission Date: 20060501
  Serious: Yes (Hospitalization)
  Sender: FDA-Public Use
  Company Number: ENTC2005-0242

PATIENT
  Age: 50 Year
  Sex: Female

DRUGS (4)
  1. STALEVO 100 [Suspect]
     Dosage: 900 MG (150 MG, 6 IN 1 D)
     Route: 048
     Dates: start: 20041201
  2. SINEMET CR [Concomitant]
  3. NEXIUM [Concomitant]
  4. MIRAPEXIN [Concomitant]

REACTIONS (3)
  - DYSPHAGIA [None]
  - FUNGAL OESOPHAGITIS [None]
  - OROPHARYNGITIS FUNGAL [None]
